FAERS Safety Report 8056496-X (Version None)
Quarter: 2012Q1

REPORT INFORMATION
  Report Type: 
  Country: None (occurrence: None)
  Receive Date: 20120119
  Receipt Date: 20120110
  Transmission Date: 20120608
  Serious: Yes (Life-Threatening)
  Sender: FDA-Public Use
  Company Number: TR-TEVA-317723ISR

PATIENT
  Sex: Female
  Weight: 63 kg

DRUGS (1)
  1. COPAXONE [Suspect]
     Indication: MULTIPLE SCLEROSIS
     Dosage: ONCE
     Route: 058
     Dates: start: 20110801

REACTIONS (5)
  - NAUSEA [None]
  - RESPIRATORY ARREST [None]
  - DYSPNOEA [None]
  - URTICARIA [None]
  - LOSS OF CONSCIOUSNESS [None]
